FAERS Safety Report 17816827 (Version 1)
Quarter: 2020Q2

REPORT INFORMATION
  Report Type: Report from Study
  Country: US (occurrence: US)
  Receive Date: 20200522
  Receipt Date: 20200522
  Transmission Date: 20200714
  Serious: Yes (Death, Life-Threatening, Hospitalization)
  Sender: FDA-Public Use
  Company Number: US-SA-2020SA079483

PATIENT
  Age: 79 Year
  Sex: Male

DRUGS (31)
  1. POTASSIUM CHLORIDE. [Concomitant]
     Active Substance: POTASSIUM CHLORIDE
     Indication: HYPOKALAEMIA
     Dosage: 40 MEQ, 1X
     Route: 042
     Dates: start: 20200321, end: 20200321
  2. SALBUTAMOL [Concomitant]
     Active Substance: ALBUTEROL
  3. HEPARIN [Concomitant]
     Active Substance: HEPARIN SODIUM
     Indication: PROPHYLAXIS
     Dosage: 5000 UT, Q6H
     Route: 058
     Dates: start: 20200317, end: 20200324
  4. POTASSIUM CHLORIDE. [Concomitant]
     Active Substance: POTASSIUM CHLORIDE
     Dosage: 1000 ML
  5. DEXTROSE. [Concomitant]
     Active Substance: DEXTROSE
     Indication: PRODUCT USED FOR UNKNOWN INDICATION
     Dosage: 1000 ML
     Route: 042
     Dates: start: 20200323, end: 20200324
  6. NOREPINEPHRINE [NOREPINEPHRINE HYDROCHLORIDE] [Concomitant]
     Indication: PRODUCT USED FOR UNKNOWN INDICATION
     Dosage: 8 MG IN SODIUM CHLORIDE 0.9% 250 ML, INFUSE AT 25.9 ML/HR DOSE RATE 0.2 MCG/KG/MIN
     Route: 042
     Dates: start: 20200323, end: 20200323
  7. FAMOTIDINE. [Concomitant]
     Active Substance: FAMOTIDINE
     Indication: COVID-19
     Dosage: 20 MG, QD
     Route: 042
     Dates: start: 20200323, end: 20200326
  8. MIDAZOLAM. [Concomitant]
     Active Substance: MIDAZOLAM
     Indication: SEDATION
     Dosage: 100 MG IN SODIUM CHLORIDE 0.9% 100 ML, INFUSE AT 1.38 ML/HR DOSE RATE 0.02 MG/KG/HR
     Route: 042
     Dates: start: 20200323, end: 20200325
  9. HEPARIN [Concomitant]
     Active Substance: HEPARIN SODIUM
     Dosage: 15 ML, Q12H, SWAB MOUTH AND THROAT
     Route: 058
     Dates: start: 20200323, end: 202003
  10. RINGERS LACTATE [Concomitant]
     Active Substance: CALCIUM CHLORIDE\POTASSIUM CHLORIDE\SODIUM LACTATE
     Indication: FLUID REPLACEMENT
     Dosage: 500 ML, INFUSE OVER 30 MIN
     Route: 042
     Dates: start: 20200325, end: 20200325
  11. HYDROXYCHLOROQUINE [Concomitant]
     Active Substance: HYDROXYCHLOROQUINE
     Indication: CORONAVIRUS INFECTION
     Dosage: 400 MG, Q12H
     Route: 048
     Dates: start: 20200319, end: 20200319
  12. HYDROXYCHLOROQUINE [Concomitant]
     Active Substance: HYDROXYCHLOROQUINE
     Dosage: 200 MG, Q12H
     Route: 048
     Dates: start: 20200320
  13. HYDROXYCHLOROQUINE [Concomitant]
     Active Substance: HYDROXYCHLOROQUINE
     Dosage: 200 MG, BID
     Route: 048
     Dates: start: 20200324, end: 20200324
  14. ACETAMINOPHEN. [Concomitant]
     Active Substance: ACETAMINOPHEN
     Indication: PAIN
     Dosage: 650 MG, 1X
     Route: 048
     Dates: start: 20200317, end: 202003
  15. ACETAMINOPHEN. [Concomitant]
     Active Substance: ACETAMINOPHEN
     Indication: PYREXIA
     Dosage: 650 MG, Q6H
     Route: 048
     Dates: start: 20200317
  16. CHLORHEXIDINE [Concomitant]
     Active Substance: CHLORHEXIDINE
     Indication: PROPHYLAXIS
     Dosage: 15 ML, BID
     Dates: start: 20200323
  17. NOREPINEPHRINE [NOREPINEPHRINE HYDROCHLORIDE] [Concomitant]
     Dosage: 16 MG IN SODIUM CHLORIDE 0.9% 250 ML, INFUSE AT 3.24 ML/HR DOSE RATE 0.05 MCG/KG/MIN
     Route: 042
     Dates: start: 20200324, end: 20200326
  18. ACETAMINOPHEN. [Concomitant]
     Active Substance: ACETAMINOPHEN
     Dosage: 5000 UNK, Q8H
     Dates: start: 20200317, end: 20200324
  19. HEPARIN [Concomitant]
     Active Substance: HEPARIN SODIUM
     Dosage: 25000 UNITS IN DEXTROSE 5% 250 ML, INFUSE AT 12 ML/HRDOSE RATE 1200 UNITS/HR
     Route: 042
     Dates: start: 20200324, end: 20200326
  20. HEPARIN [Concomitant]
     Active Substance: HEPARIN SODIUM
     Dosage: 4 %, QD
     Dates: start: 20200324, end: 20200326
  21. PROPOFOL. [Concomitant]
     Active Substance: PROPOFOL
     Indication: PRODUCT USED FOR UNKNOWN INDICATION
     Dosage: 1000 MG
     Route: 042
     Dates: start: 20200323
  22. SARILUMAB [Suspect]
     Active Substance: SARILUMAB
     Indication: CORONAVIRUS INFECTION
     Dosage: 200 MG SINGLE
     Route: 042
     Dates: start: 20200320, end: 20200320
  23. ALBUTEROL [SALBUTAMOL] [Concomitant]
     Active Substance: ALBUTEROL
     Indication: DYSPNOEA
     Dosage: 90 UG, Q6H
     Route: 055
     Dates: start: 20200321, end: 20200323
  24. POTASSIUM CHLORIDE. [Concomitant]
     Active Substance: POTASSIUM CHLORIDE
     Indication: PRODUCT USED FOR UNKNOWN INDICATION
     Dosage: 10 MEQ/100ML
     Route: 042
     Dates: start: 20200322, end: 20200322
  25. NOREPINEPHRINE [NOREPINEPHRINE HYDROCHLORIDE] [Concomitant]
     Dosage: 1000 MG IN IV SOLUTION 100 ML, INFUSE AT 0.21 ML/HR DOSE RATE 0.5 MCG/KG/MIN
     Route: 042
     Dates: start: 20200323, end: 20200326
  26. ACETAMINOPHEN. [Concomitant]
     Active Substance: ACETAMINOPHEN
     Indication: THROMBOSIS PROPHYLAXIS
     Dosage: 1000 MG, 1X
     Route: 042
     Dates: start: 20200321, end: 20200326
  27. POTASSIUM CHLORIDE. [Concomitant]
     Active Substance: POTASSIUM CHLORIDE
     Dosage: 100 UG
  28. ASPIRIN [ACETYLSALICYLIC ACID] [Concomitant]
     Active Substance: ASPIRIN
     Indication: PROPHYLAXIS
     Dosage: 325 MG, QD
     Dates: start: 20200324, end: 20200326
  29. FENTANYL. [Concomitant]
     Active Substance: FENTANYL
     Indication: SEDATION
     Dosage: 100 UG, 1X
     Route: 042
     Dates: start: 20200323, end: 20200323
  30. BUMETANIDE. [Concomitant]
     Active Substance: BUMETANIDE
     Indication: PRODUCT USED FOR UNKNOWN INDICATION
     Dosage: 100 MG
  31. AMIODARONE [AMIODARONE HYDROCHLORIDE] [Concomitant]
     Active Substance: AMIODARONE HYDROCHLORIDE
     Indication: ARRHYTHMIA
     Dosage: 150 MG IN EXCEL BAG DEXTROSE 5% 100 ML, ONCE INFUSE OVER 10 MINS
     Route: 042
     Dates: start: 20200325, end: 20200326

REACTIONS (6)
  - Acute kidney injury [Not Recovered/Not Resolved]
  - Acute respiratory failure [Recovered/Resolved]
  - Multiple organ dysfunction syndrome [Fatal]
  - Acidosis [Not Recovered/Not Resolved]
  - Aspartate aminotransferase increased [Recovered/Resolved]
  - Alanine aminotransferase increased [Not Recovered/Not Resolved]

NARRATIVE: CASE EVENT DATE: 20200323
